FAERS Safety Report 10195166 (Version 2)
Quarter: 2014Q2

REPORT INFORMATION
  Report Type: Spontaneous
  Country: FR (occurrence: FR)
  Receive Date: 20140526
  Receipt Date: 20140616
  Transmission Date: 20141212
  Serious: No
  Sender: FDA-Public Use
  Company Number: FR-AMGEN-FRASP2014037209

PATIENT
  Sex: Female

DRUGS (2)
  1. ARANESP [Suspect]
     Indication: PRODUCT USED FOR UNKNOWN INDICATION
     Dosage: 150 MUG EVERY 15 DAYS
     Route: 065
     Dates: start: 2014
  2. TARDYFERON [Concomitant]
     Indication: IRON DEFICIENCY

REACTIONS (2)
  - Drug ineffective [Unknown]
  - Haemoglobin abnormal [Unknown]
